FAERS Safety Report 16072302 (Version 1)
Quarter: 2019Q1

REPORT INFORMATION
  Report Type: Spontaneous
  Country: KR (occurrence: KR)
  Receive Date: 20190314
  Receipt Date: 20190314
  Transmission Date: 20190418
  Serious: Yes (Other)
  Sender: FDA-Public Use
  Company Number: KR-NOVOPROD-647920

PATIENT
  Age: 48 Year
  Sex: Male

DRUGS (6)
  1. NOVORAPID [Suspect]
     Active Substance: INSULIN ASPART
     Dosage: 5 IU
     Route: 058
     Dates: start: 20190217
  2. NOVORAPID [Suspect]
     Active Substance: INSULIN ASPART
     Dosage: 2 IU
     Route: 058
     Dates: start: 20190217
  3. NOVORAPID [Suspect]
     Active Substance: INSULIN ASPART
     Dosage: 2 IU WITH OTHER NOVORAPID PEN
     Route: 058
     Dates: start: 20190218
  4. LANTUS [Concomitant]
     Active Substance: INSULIN GLARGINE
     Indication: DIABETES MELLITUS
     Dosage: UNK
     Route: 065
  5. NOVORAPID [Suspect]
     Active Substance: INSULIN ASPART
     Indication: TYPE 2 DIABETES MELLITUS
     Dosage: UNK
     Route: 058
     Dates: start: 2011
  6. LANTUS [Concomitant]
     Active Substance: INSULIN GLARGINE
     Dosage: 20 IU
     Route: 065
     Dates: start: 20190217

REACTIONS (5)
  - Renal transplant [Unknown]
  - Drug ineffective [Unknown]
  - Retinal detachment [Unknown]
  - Diabetes mellitus inadequate control [Unknown]
  - Product quality issue [Unknown]

NARRATIVE: CASE EVENT DATE: 201210
